FAERS Safety Report 5014448-8 (Version None)
Quarter: 2006Q2

REPORT INFORMATION
  Report Type: 
  Country: None (occurrence: None)
  Receive Date: 20060525
  Receipt Date: 20060518
  Transmission Date: 20061013
  Serious: Yes (Hospitalization)
  Sender: FDA-Public Use
  Company Number: DEWYE634918MAY06

PATIENT
  Age: 29 Year
  Sex: Female

DRUGS (3)
  1. VENLAFAXINE HCL [Suspect]
     Dosage: 4 CAPSULES (OVERDOSE AMOUNT 300 MG) ORAL
     Route: 048
     Dates: start: 20060516, end: 20060516
  2. LITHIUM CARBONATE [Suspect]
     Dosage: 15 TABLETS (OVERDOSE AMOUNT 6750 MG) ORAL
     Route: 048
     Dates: start: 20060516, end: 20060516
  3. ZYPREXA [Suspect]
     Dosage: 4 TABLETS (OVERDOSE AMOUNT 40 MG) ORAL
     Route: 048
     Dates: start: 20060516, end: 20060516

REACTIONS (4)
  - DIARRHOEA [None]
  - DRUG ABUSER [None]
  - FATIGUE [None]
  - MULTIPLE DRUG OVERDOSE INTENTIONAL [None]
